FAERS Safety Report 5295348-5 (Version None)
Quarter: 2007Q2

REPORT INFORMATION
  Report Type: 
  Country: None (occurrence: None)
  Receive Date: 20070412
  Receipt Date: 20070329
  Transmission Date: 20071010
  Serious: Yes (Hospitalization)
  Sender: FDA-Public Use
  Company Number: BEWYE273130MAR07

PATIENT
  Age: 17 Year
  Sex: Female

DRUGS (2)
  1. ENBREL [Suspect]
     Indication: PSORIASIS
     Route: 058
     Dates: start: 20061001, end: 20070321
  2. MINOCYCLINE HCL [Concomitant]
     Indication: ACNE
     Dosage: 1 TABLET PER DAY
     Route: 048
     Dates: start: 20060406

REACTIONS (1)
  - EOSINOPHILIA [None]
